FAERS Safety Report 10710280 (Version 1)
Quarter: 2015Q1

REPORT INFORMATION
  Report Type: Report from Study
  Country: US (occurrence: None)
  Receive Date: 20150112
  Receipt Date: 20150112
  Transmission Date: 20150721
  Serious: Yes (Hospitalization)
  Sender: FDA-Public Use
  Company Number: US-001592

PATIENT
  Sex: Female

DRUGS (2)
  1. GATTEX [Suspect]
     Active Substance: TEDUGLUTIDE\WATER
     Indication: SHORT-BOWEL SYNDROME
     Dosage: (DF SUBCUTANEOUS )
     Route: 058
  2. SOLUTIONS FOR PARENTERAL NUTRITION) [Concomitant]

REACTIONS (6)
  - Sepsis [None]
  - Staphylococcal infection [None]
  - Nausea [None]
  - Vomiting [None]
  - Drug dose omission [None]
  - Headache [None]

NARRATIVE: CASE EVENT DATE: 2014
